FAERS Safety Report 4708356-7 (Version None)
Quarter: 2005Q3

REPORT INFORMATION
  Report Type: 
  Country: None (occurrence: None)
  Receive Date: 20050707
  Receipt Date: 20050131
  Transmission Date: 20060218
  Serious: Yes (Death, Other)
  Sender: FDA-Public Use
  Company Number: 2005AP00683

PATIENT
  Age: 50 Year
  Sex: Male

DRUGS (9)
  1. SEROQUEL [Suspect]
     Route: 048
     Dates: start: 20050127, end: 20050127
  2. DIPHENHYDRAMINE [Interacting]
     Indication: AGITATION
     Dates: start: 20050127
  3. DIPHENHYDRAMINE [Interacting]
     Indication: INSOMNIA
     Dates: start: 20050127
  4. AMLODIPINE [Concomitant]
  5. INSULIN [Concomitant]
     Route: 065
  6. ACETAMINOPHEN [Concomitant]
  7. CEFUROXIME [Concomitant]
  8. IRBESARTAN - HYDROCHLOROTHIAZIDE [Concomitant]
  9. AZITHROMYCIN [Concomitant]

REACTIONS (4)
  - DEATH [None]
  - DRUG INTERACTION [None]
  - HYPOTENSION [None]
  - SLEEP APNOEA SYNDROME [None]
